FAERS Safety Report 25462913 (Version 1)
Quarter: 2025Q2

REPORT INFORMATION
  Report Type: Spontaneous
  Country: US (occurrence: US)
  Receive Date: 20250620
  Receipt Date: 20250620
  Transmission Date: 20250716
  Serious: No
  Sender: GALPHARM INTERNATIONAL
  Company Number: US-PERRIGO-24US009889

PATIENT
  Age: 84 Year
  Sex: Female
  Weight: 52.154 kg

DRUGS (1)
  1. DICLOFENAC SODIUM [Suspect]
     Active Substance: DICLOFENAC SODIUM
     Indication: Arthralgia
     Route: 061
     Dates: start: 202404

REACTIONS (4)
  - Pruritus [Not Recovered/Not Resolved]
  - Product administered at inappropriate site [Unknown]
  - Incorrect product administration duration [Unknown]
  - Wrong technique in product usage process [Unknown]

NARRATIVE: CASE EVENT DATE: 20240401
